FAERS Safety Report 7552532-5 (Version None)
Quarter: 2011Q2

REPORT INFORMATION
  Report Type: 
  Country: None (occurrence: None)
  Receive Date: 20110616
  Receipt Date: 20110609
  Transmission Date: 20111010
  Serious: Yes (Death, Disabling)
  Sender: FDA-Public Use
  Company Number: NZ-CELGENEUS-118-21880-11032219

PATIENT
  Sex: Male
  Weight: 74 kg

DRUGS (1)
  1. REVLIMID [Suspect]
     Indication: MULTIPLE MYELOMA
     Dosage: 15 MILLIGRAM
     Route: 048
     Dates: start: 20100407, end: 20110111

REACTIONS (2)
  - PULMONARY EMBOLISM [None]
  - TRANSITIONAL CELL CARCINOMA [None]
